FAERS Safety Report 25641526 (Version 5)
Quarter: 2025Q4

REPORT INFORMATION
  Report Type: Report from Study
  Country: CA (occurrence: CA)
  Receive Date: 20250804
  Receipt Date: 20251104
  Transmission Date: 20260118
  Serious: Yes (Other)
  Sender: TAKEDA
  Company Number: CA-TAKEDA-2025TUS069274

PATIENT
  Age: 73 Year
  Sex: Male

DRUGS (4)
  1. VEDOLIZUMAB [Suspect]
     Active Substance: VEDOLIZUMAB
     Indication: Colitis ulcerative
     Dosage: 300 MILLIGRAM
     Dates: start: 20250731, end: 20250911
  2. MESALAMINE [Concomitant]
     Active Substance: MESALAMINE
     Dosage: 1.2 GRAM
  3. RAMIPRIL [Concomitant]
     Active Substance: RAMIPRIL
     Dosage: 5 MILLIGRAM
  4. IRON [Concomitant]
     Active Substance: IRON
     Indication: Supplementation therapy
     Dosage: UNK UNK, QOD

REACTIONS (3)
  - Haematochezia [Unknown]
  - Frequent bowel movements [Unknown]
  - Treatment failure [Unknown]
